FAERS Safety Report 10832094 (Version 2)
Quarter: 2015Q1

REPORT INFORMATION
  Report Type: Spontaneous
  Country: IT (occurrence: IT)
  Receive Date: 20150219
  Receipt Date: 20150219
  Transmission Date: 20150721
  Serious: Yes (Disabling, Other)
  Sender: FDA-Public Use
  Company Number: IT-ACTAVIS-2015-02154

PATIENT
  Age: 50 Year
  Sex: Female

DRUGS (1)
  1. CETIRIZINE (UNKNOWN) [Suspect]
     Active Substance: CETIRIZINE HYDROCHLORIDE
     Indication: URTICARIA
     Dosage: 10 MG, DAILY
     Route: 065

REACTIONS (3)
  - Drug ineffective [None]
  - Parkinsonism [None]
  - Oromandibular dystonia [Recovering/Resolving]
